FAERS Safety Report 6838701-8 (Version None)
Quarter: 2010Q3

REPORT INFORMATION
  Report Type: 
  Country: None (occurrence: None)
  Receive Date: 20100713
  Receipt Date: 20070613
  Transmission Date: 20110219
  Serious: No
  Sender: FDA-Public Use
  Company Number: US-PFIZER INC-2007037618

PATIENT
  Sex: Female
  Weight: 69.76 kg

DRUGS (6)
  1. CHANTIX [Suspect]
     Indication: SMOKING CESSATION THERAPY
     Dates: start: 20070201, end: 20070505
  2. HERBAL PREPARATION [Concomitant]
     Indication: ANXIETY
  3. HERBAL PREPARATION [Concomitant]
     Indication: STRESS
  4. HERBAL PREPARATION [Concomitant]
     Indication: NERVOUSNESS
  5. CHOLESTEROL- AND TRIGLYCERIDE REDUCERS [Concomitant]
     Indication: BLOOD CHOLESTEROL INCREASED
  6. ANTIHYPERTENSIVES [Concomitant]
     Indication: HYPERTENSION

REACTIONS (3)
  - HEADACHE [None]
  - INSOMNIA [None]
  - PARAESTHESIA [None]
